FAERS Safety Report 8848683 (Version 2)
Quarter: 2013Q1

REPORT INFORMATION
  Report Type: Spontaneous
  Country: AU (occurrence: AU)
  Receive Date: 20121019
  Receipt Date: 20130118
  Transmission Date: 20140127
  Serious: Yes (Life-Threatening, Hospitalization, Disabling, Other)
  Sender: FDA-Public Use
  Company Number: AU-009507513-1210AUS002903

PATIENT
  Age: 67 Year
  Sex: Female

DRUGS (6)
  1. TEMODAL [Suspect]
     Indication: GLIOBLASTOMA MULTIFORME
     Dosage: 140 MG, QD
     Route: 048
     Dates: start: 20120907, end: 20120926
  2. DEXAMETHASONE [Concomitant]
     Indication: APPETITE DISORDER
     Dosage: 2 MG, QD
     Route: 048
  3. THYROXINE [Concomitant]
     Indication: THYROID DISORDER
     Dosage: 100 MICROGRAM, QD
     Route: 048
  4. KEPPRA [Concomitant]
     Indication: CONVULSION PROPHYLAXIS
     Dosage: 500 MG, BID
     Route: 048
     Dates: start: 20120808, end: 20120926
  5. NEXIUM [Concomitant]
     Indication: REFLUX GASTRITIS
     Dosage: 40 MG, QD
     Route: 048
     Dates: start: 20120808
  6. PANADOL [Concomitant]
     Indication: PAIN
     Dosage: 500 MG, PRN
     Route: 048
     Dates: start: 20120808

REACTIONS (10)
  - Feeling cold [Unknown]
  - Feeling abnormal [Unknown]
  - Pancytopenia [Unknown]
  - Headache [Unknown]
  - Malaise [Unknown]
  - Nausea [Unknown]
  - Decreased appetite [Unknown]
  - Bone marrow failure [Unknown]
  - Pyrexia [Unknown]
  - Culture urine positive [Unknown]
